FAERS Safety Report 15916170 (Version 1)
Quarter: 2019Q1

REPORT INFORMATION
  Report Type: Report from Study
  Country: EG (occurrence: EG)
  Receive Date: 20190204
  Receipt Date: 20190204
  Transmission Date: 20190417
  Serious: Yes (Other)
  Sender: FDA-Public Use
  Company Number: PHHY2019EG021212

PATIENT
  Age: 60 Year
  Sex: Male

DRUGS (4)
  1. AMARYL [Concomitant]
     Active Substance: GLIMEPIRIDE
     Indication: DIABETES MELLITUS
     Dosage: 2 MG, QD
     Route: 065
  2. GLIVEC [Suspect]
     Active Substance: IMATINIB MESYLATE
     Indication: CHRONIC MYELOID LEUKAEMIA
     Dosage: 400 MG, QD
     Route: 048
     Dates: start: 20180428, end: 201811
  3. TASIGNA [Suspect]
     Active Substance: NILOTINIB
     Indication: CHRONIC MYELOID LEUKAEMIA
     Dosage: 800 MG, QD
     Route: 048
     Dates: start: 201811
  4. CONCOR [Concomitant]
     Active Substance: BISOPROLOL FUMARATE
     Indication: HYPERTENSION
     Dosage: 1 DF, QD
     Route: 065

REACTIONS (10)
  - Pain [Recovering/Resolving]
  - Inappropriate schedule of product administration [Unknown]
  - Haemorrhage [Recovering/Resolving]
  - Rash [Recovering/Resolving]
  - Cytogenetic analysis abnormal [Unknown]
  - Product physical issue [Unknown]
  - Drug ineffective [Unknown]
  - Pruritus [Recovering/Resolving]
  - Scratch [Recovering/Resolving]
  - Hyperhidrosis [Recovering/Resolving]

NARRATIVE: CASE EVENT DATE: 20180723
